FAERS Safety Report 10913635 (Version 1)
Quarter: 2015Q1

REPORT INFORMATION
  Report Type: Spontaneous
  Country: US (occurrence: None)
  Receive Date: 20150311
  Receipt Date: 20150311
  Transmission Date: 20150721
  Serious: Yes (Other)
  Sender: FDA-Public Use
  Company Number: None

PATIENT
  Age: 22 Year
  Sex: Female
  Weight: 61.24 kg

DRUGS (5)
  1. CLINDAMYCIN [Suspect]
     Active Substance: CLINDAMYCIN\CLINDAMYCIN PHOSPHATE
     Indication: ABSCESS ORAL
     Dosage: 1
     Route: 048
     Dates: start: 20150205, end: 20150308
  2. HYDROCODONE/APAP [Concomitant]
     Active Substance: ACETAMINOPHEN\HYDROCODONE
  3. IBUPROFEN. [Concomitant]
     Active Substance: IBUPROFEN
  4. VASELINE PURE [Concomitant]
     Active Substance: PETROLATUM
  5. CLINDAMYCIN [Suspect]
     Active Substance: CLINDAMYCIN\CLINDAMYCIN PHOSPHATE
     Indication: TOOTH INFECTION
     Dosage: 1
     Route: 048
     Dates: start: 20150205, end: 20150308

REACTIONS (7)
  - Rash [None]
  - Dysphagia [None]
  - Pyrexia [None]
  - Pruritus [None]
  - Burning sensation [None]
  - Oropharyngeal pain [None]
  - Vaginal discharge [None]

NARRATIVE: CASE EVENT DATE: 20150307
